FAERS Safety Report 4638463-9 (Version None)
Quarter: 2005Q2

REPORT INFORMATION
  Report Type: 
  Country: None (occurrence: None)
  Receive Date: 20050418
  Receipt Date: 20050405
  Transmission Date: 20051028
  Serious: Yes (Other)
  Sender: FDA-Public Use
  Company Number: 2005055760

PATIENT
  Age: 22 Year
  Sex: Female
  Weight: 70.3075 kg

DRUGS (1)
  1. DEPO-PROVERA [Suspect]
     Indication: CONTRACEPTION
     Dosage: 150 MG (150 MG, 1ST INJECTION, EVERY 10-13 WEEKS), INTRAMUSCULAR
     Route: 030
     Dates: start: 20020815, end: 20020815

REACTIONS (4)
  - ABDOMINAL DISTENSION [None]
  - AMENORRHOEA [None]
  - RASH [None]
  - VAGINAL LACERATION [None]
